FAERS Safety Report 15098053 (Version 2)
Quarter: 2018Q3

REPORT INFORMATION
  Report Type: Spontaneous
  Country: US (occurrence: US)
  Receive Date: 20180702
  Receipt Date: 20180920
  Transmission Date: 20181010
  Serious: No
  Sender: FDA-Public Use
  Company Number: US-IGSA-SR10006279

PATIENT
  Age: 68 Year
  Sex: Female

DRUGS (4)
  1. GAMUNEX?C [Suspect]
     Active Substance: HUMAN IMMUNOGLOBULIN G
     Indication: PROGRESSIVE MULTIPLE SCLEROSIS
     Dosage: 20 G, QD
     Route: 042
     Dates: start: 20180423, end: 20180427
  2. EFFEXOR [Concomitant]
     Active Substance: VENLAFAXINE HYDROCHLORIDE
  3. TIZANIDINE HCL [Concomitant]
     Active Substance: TIZANIDINE HYDROCHLORIDE
  4. BACLOFEN. [Concomitant]
     Active Substance: BACLOFEN

REACTIONS (6)
  - Dyspepsia [Recovered/Resolved]
  - Cough [Recovered/Resolved]
  - Headache [Recovered/Resolved]
  - Fatigue [Recovered/Resolved]
  - Urinary tract infection [Unknown]
  - Hot flush [Recovered/Resolved]

NARRATIVE: CASE EVENT DATE: 2018
